FAERS Safety Report 7491968-8 (Version None)
Quarter: 2011Q2

REPORT INFORMATION
  Report Type: 
  Country: None (occurrence: None)
  Receive Date: 20110519
  Receipt Date: 20110510
  Transmission Date: 20111010
  Serious: Yes (Death)
  Sender: FDA-Public Use
  Company Number: AU-GENENTECH-316328

PATIENT
  Sex: Male
  Weight: 90 kg

DRUGS (23)
  1. RITUXIMAB [Suspect]
     Dosage: 770 MG, Q21D
     Route: 042
     Dates: start: 20080407
  2. RITUXIMAB [Suspect]
     Dosage: 770 MG, Q21D
     Route: 042
     Dates: start: 20080610
  3. PREDNISONE [Suspect]
     Indication: DIFFUSE LARGE B-CELL LYMPHOMA
     Route: 065
  4. SOMAC (AUSTRALIA) [Concomitant]
     Indication: PRODUCT USED FOR UNKNOWN INDICATION
     Dosage: UNK
     Dates: start: 20090101, end: 20110302
  5. RITUXIMAB [Suspect]
     Dosage: 770 MG, Q21D
     Route: 042
     Dates: start: 20080704
  6. VINCRISTINE [Suspect]
     Indication: DIFFUSE LARGE B-CELL LYMPHOMA
     Route: 065
  7. DIGOXIN [Concomitant]
     Indication: PRODUCT USED FOR UNKNOWN INDICATION
     Dosage: UNK
     Dates: start: 20110101, end: 20110302
  8. PRAVACHOL [Concomitant]
     Indication: PRODUCT USED FOR UNKNOWN INDICATION
     Dosage: UNK
     Dates: start: 20090101, end: 20110302
  9. WARFARIN SODIUM [Concomitant]
     Indication: PRODUCT USED FOR UNKNOWN INDICATION
     Dosage: UNK
     Dates: start: 20090101, end: 20110101
  10. LANOXIN [Concomitant]
     Indication: PRODUCT USED FOR UNKNOWN INDICATION
     Dosage: UNK
     Dates: start: 20090101, end: 20110302
  11. RITUXIMAB [Suspect]
     Dosage: 770 MG, Q21D
     Route: 042
     Dates: start: 20080729
  12. PEGFILGRASTIM [Suspect]
     Indication: DIFFUSE LARGE B-CELL LYMPHOMA
     Dosage: 6 A?G, UNK
     Route: 065
  13. ETOPOSIDE [Suspect]
     Indication: DIFFUSE LARGE B-CELL LYMPHOMA
     Dosage: 480 MG, Q21D
     Route: 042
     Dates: start: 20080226
  14. CYCLOPHOSPHAMIDE [Suspect]
     Indication: DIFFUSE LARGE B-CELL LYMPHOMA
     Route: 065
  15. RITUXIMAB [Suspect]
     Dosage: 770 MG, Q21D
     Route: 042
     Dates: start: 20080520
  16. MINAX [Concomitant]
     Indication: PRODUCT USED FOR UNKNOWN INDICATION
     Dosage: UNK
     Dates: start: 20090101, end: 20110302
  17. RITUXIMAB [Suspect]
     Indication: DIFFUSE LARGE B-CELL LYMPHOMA
     Dosage: 770 MG, Q21D
     Route: 042
     Dates: start: 20080226
  18. RITUXIMAB [Suspect]
     Dosage: 770 MG, Q21D
     Route: 042
     Dates: start: 20080317
  19. DOXORUBICIN HCL [Suspect]
     Indication: DIFFUSE LARGE B-CELL LYMPHOMA
     Dosage: UNK
     Route: 065
  20. DIAMICRON [Concomitant]
     Indication: PRODUCT USED FOR UNKNOWN INDICATION
     Dosage: UNK
     Dates: start: 20100101, end: 20110302
  21. RITUXIMAB [Suspect]
     Dosage: 770 MG, Q21D
     Route: 042
     Dates: start: 20080428
  22. IFOSFAMIDE [Suspect]
     Indication: DIFFUSE LARGE B-CELL LYMPHOMA
     Dosage: 2700 MG, Q21D
     Route: 042
     Dates: start: 20080226
  23. INDERAL [Concomitant]
     Indication: PRODUCT USED FOR UNKNOWN INDICATION
     Dosage: UNK
     Dates: start: 20110101, end: 20110302

REACTIONS (1)
  - MYELODYSPLASTIC SYNDROME [None]
